FAERS Safety Report 12726387 (Version 1)
Quarter: 2016Q3

REPORT INFORMATION
  Report Type: Spontaneous
  Country: US (occurrence: US)
  Receive Date: 20160908
  Receipt Date: 20160908
  Transmission Date: 20161109
  Serious: No
  Sender: FDA-Public Use
  Company Number: None

PATIENT
  Age: 26 Year
  Sex: Female
  Weight: 45.36 kg

DRUGS (2)
  1. NEXPLANON [Suspect]
     Active Substance: ETONOGESTREL
     Dates: start: 20151231
  2. OCCASIONAL EXCEDRIN MIGRAINE [Concomitant]

REACTIONS (7)
  - Depression [None]
  - Breast pain [None]
  - Breast tenderness [None]
  - Muscle spasms [None]
  - Haemorrhage [None]
  - Anaemia [None]
  - Anxiety [None]
